FAERS Safety Report 8267519-7 (Version None)
Quarter: 2012Q2

REPORT INFORMATION
  Report Type: 
  Country: None (occurrence: None)
  Receive Date: 20120409
  Receipt Date: 20120326
  Transmission Date: 20120825
  Serious: Yes (Other)
  Sender: FDA-Public Use
  Company Number: US-JNJFOC-20120402998

PATIENT

DRUGS (1)
  1. LEVAQUIN [Suspect]
     Indication: PNEUMONIA
     Route: 042

REACTIONS (5)
  - BLINDNESS [None]
  - INFUSION SITE INFLAMMATION [None]
  - RASH ERYTHEMATOUS [None]
  - RESTLESSNESS [None]
  - HEADACHE [None]
